FAERS Safety Report 26044806 (Version 1)
Quarter: 2025Q4

REPORT INFORMATION
  Report Type: Spontaneous
  Country: US (occurrence: US)
  Receive Date: 20251114
  Receipt Date: 20251114
  Transmission Date: 20260118
  Serious: No
  Sender: OPTINOSE INC
  Company Number: US-OPTINOSE US, INC.-2025OPT000201

PATIENT

DRUGS (2)
  1. XHANCE [Suspect]
     Active Substance: FLUTICASONE PROPIONATE
     Indication: Product used for unknown indication
     Dosage: 186 MICROGRAM, BID
     Route: 045
     Dates: end: 2021
  2. XHANCE [Suspect]
     Active Substance: FLUTICASONE PROPIONATE
     Dosage: 186 MICROGRAM, BID
     Route: 045
     Dates: start: 2025

REACTIONS (3)
  - Anosmia [Recovered/Resolved]
  - Nasal congestion [Unknown]
  - Cough [Unknown]
